FAERS Safety Report 5150729-5 (Version None)
Quarter: 2006Q4

REPORT INFORMATION
  Report Type: 
  Country: None (occurrence: None)
  Receive Date: 20061114
  Receipt Date: 20060831
  Transmission Date: 20070319
  Serious: Yes (Death, Hospitalization, Other)
  Sender: FDA-Public Use
  Company Number: JP-SANOFI-SYNTHELABO-A01200607204

PATIENT
  Sex: Male
  Weight: 68 kg

DRUGS (39)
  1. MORPHINE [Suspect]
     Indication: CANCER PAIN
     Route: 048
     Dates: start: 20051130, end: 20060928
  2. FLUOROURACIL [Suspect]
     Indication: RECTAL CANCER
     Route: 041
     Dates: start: 20051207, end: 20060802
  3. FLUOROURACIL [Suspect]
     Route: 041
     Dates: start: 20051207, end: 20060802
  4. LEUCOVORIN CALCIUM [Suspect]
     Indication: RECTAL CANCER
     Route: 041
     Dates: start: 20051207, end: 20060801
  5. OXALIPLATIN [Suspect]
     Indication: RECTAL CANCER
     Dosage: 149.6MG/BODY=85.0MG/M2 INFUSION ON DAY 1
     Route: 041
     Dates: start: 20051207, end: 20060801
  6. MEROPEN [Concomitant]
     Route: 042
     Dates: start: 20061003, end: 20061005
  7. INOVAN [Concomitant]
     Route: 042
     Dates: start: 20061002, end: 20061022
  8. MAXIPIME [Concomitant]
     Route: 042
     Dates: start: 20061002, end: 20061002
  9. MORPHINE [Concomitant]
     Route: 058
     Dates: start: 20060928, end: 20061022
  10. CONIEL [Concomitant]
     Route: 048
     Dates: start: 20060927, end: 20061003
  11. CONIEL [Concomitant]
     Route: 048
     Dates: start: 20061008, end: 20061009
  12. LASIX [Concomitant]
     Route: 048
     Dates: start: 20060927
  13. RIVOTRIL [Concomitant]
     Route: 048
     Dates: start: 20060925, end: 20061014
  14. AMOXAN [Concomitant]
     Route: 048
     Dates: start: 20060925, end: 20061014
  15. OXYCONTIN [Concomitant]
     Route: 048
     Dates: start: 20060922, end: 20060928
  16. FULCALIQ 1 [Concomitant]
     Route: 042
     Dates: start: 20060911, end: 20060912
  17. LOXONIN [Concomitant]
     Route: 048
     Dates: start: 20060911, end: 20060925
  18. FULCALIQ 2 [Concomitant]
     Route: 042
     Dates: start: 20060909, end: 20060910
  19. AMOBAN [Concomitant]
     Route: 048
     Dates: start: 20060906, end: 20060910
  20. ROPION [Concomitant]
     Route: 042
     Dates: start: 20060905, end: 20060905
  21. BLOPRESS [Concomitant]
     Route: 048
     Dates: start: 20060905, end: 20061002
  22. BLOPRESS [Concomitant]
     Route: 048
     Dates: start: 20061007, end: 20061009
  23. SODIUM CHLORIDE [Concomitant]
     Route: 042
     Dates: start: 20060901, end: 20060912
  24. MULTIVITAMIN ADDITIVE [Concomitant]
     Route: 042
     Dates: start: 20060901, end: 20060908
  25. AMINOTRIPA NO.1 [Concomitant]
     Route: 042
     Dates: start: 20060901, end: 20060913
  26. VITAMEDIN [Concomitant]
     Route: 042
     Dates: start: 20060829, end: 20060831
  27. AMINO FLUID [Concomitant]
     Route: 042
     Dates: start: 20060829, end: 20060831
  28. SOLITA-T NO.1 [Concomitant]
     Route: 042
     Dates: start: 20060829, end: 20060831
  29. LASIX [Concomitant]
     Route: 042
     Dates: start: 20060901, end: 20060913
  30. ADALAT [Concomitant]
     Route: 048
     Dates: start: 20060901, end: 20060913
  31. PRIMPERAN TAB [Concomitant]
     Route: 042
     Dates: start: 20060830, end: 20060908
  32. FAMOTIDINE [Concomitant]
     Route: 042
     Dates: start: 20060829, end: 20060908
  33. KENALOG [Concomitant]
     Dosage: UNK
     Route: 048
     Dates: start: 20060808
  34. HACHIAZULE [Concomitant]
     Route: 048
     Dates: start: 20060808
  35. VOLTAREN [Concomitant]
     Route: 048
     Dates: start: 20060925, end: 20061004
  36. MINOCYCLINE HCL [Concomitant]
     Route: 042
     Dates: start: 20061006, end: 20061017
  37. MINERALIN [Concomitant]
     Route: 042
     Dates: start: 20060909, end: 20060912
  38. MORPHINE SULFATE [Suspect]
     Indication: CANCER PAIN
     Route: 048
     Dates: start: 20060107, end: 20060922
  39. BEVACIZUMAB [Suspect]
     Dosage: 340.5 MG
     Route: 041
     Dates: start: 20051207, end: 20060801

REACTIONS (15)
  - ANOREXIA [None]
  - ASCITES [None]
  - BLOOD PRESSURE INCREASED [None]
  - CONSTIPATION [None]
  - DEHYDRATION [None]
  - DISEASE PROGRESSION [None]
  - FATIGUE [None]
  - HYDRONEPHROSIS [None]
  - INFLAMMATION [None]
  - NEUTROPENIA [None]
  - PLEURAL EFFUSION [None]
  - PROCEDURAL COMPLICATION [None]
  - RENAL IMPAIRMENT [None]
  - SEPTIC SHOCK [None]
  - STOMATITIS [None]
